FAERS Safety Report 5864142-6 (Version None)
Quarter: 2008Q3

REPORT INFORMATION
  Report Type: 
  Country: None (occurrence: None)
  Receive Date: 20080829
  Receipt Date: 20080818
  Transmission Date: 20090109
  Serious: Yes (Hospitalization)
  Sender: FDA-Public Use
  Company Number: CH-AMGEN-UK302229

PATIENT
  Age: 48 Year
  Sex: Female
  Weight: 65 kg

DRUGS (9)
  1. NEULASTA [Suspect]
     Indication: CHEMOTHERAPY
     Route: 041
     Dates: start: 20080606, end: 20080708
  2. ENDOXAN [Suspect]
     Route: 041
     Dates: start: 20080519, end: 20080707
  3. TAXOL [Suspect]
     Route: 041
     Dates: start: 20080721
  4. EPIRUBICIN [Suspect]
     Route: 041
     Dates: start: 20080519, end: 20080707
  5. ONDANSETRON [Concomitant]
     Route: 041
     Dates: start: 20080519
  6. SOLU-MEDROL [Concomitant]
     Route: 041
     Dates: start: 20080519
  7. METOCLOPRAMIDE HYDROCHLORIDE [Concomitant]
     Route: 041
     Dates: start: 20080519
  8. METOPROLOL SUCCINATE [Concomitant]
     Route: 048
  9. BLACK COHOSH [Concomitant]
     Route: 048

REACTIONS (1)
  - LUNG INFILTRATION [None]
